FAERS Safety Report 4793456-6 (Version None)
Quarter: 2005Q4

REPORT INFORMATION
  Report Type: 
  Country: None (occurrence: None)
  Receive Date: 20051011
  Receipt Date: 20050317
  Transmission Date: 20060501
  Serious: No
  Sender: FDA-Public Use
  Company Number: US-BRISTOL-MYERS SQUIBB COMPANY-12902136

PATIENT
  Sex: Male
  Weight: 125 kg

DRUGS (9)
  1. GLUCOPHAGE XR [Suspect]
     Indication: DIABETES MELLITUS
     Route: 048
  2. LOTREL [Concomitant]
  3. DIOVAN [Concomitant]
  4. SALMON OIL [Concomitant]
  5. ESTER-C [Concomitant]
  6. COENZYME Q10 [Concomitant]
  7. MULTIVITAMIN [Concomitant]
  8. ASPIRIN [Concomitant]
  9. FLAXSEED OIL [Concomitant]

REACTIONS (2)
  - BLOOD GLUCOSE INCREASED [None]
  - INFLUENZA [None]
